FAERS Safety Report 5169555-6 (Version None)
Quarter: 2006Q4

REPORT INFORMATION
  Report Type: 
  Country: None (occurrence: None)
  Receive Date: 20061204
  Receipt Date: 20061121
  Transmission Date: 20070319
  Serious: No
  Sender: FDA-Public Use
  Company Number: PHEH2006US13515

PATIENT
  Age: 74 Year
  Sex: Male
  Weight: 136.0791 kg

DRUGS (1)
  1. VISUDYNE [Suspect]
     Indication: MACULAR DEGENERATION
     Dosage: 7.5 MG DAILY IV
     Route: 042
     Dates: start: 20040921, end: 20040921

REACTIONS (3)
  - INFUSION RELATED REACTION [None]
  - INJECTION SITE ERYTHEMA [None]
  - INJECTION SITE SWELLING [None]
